FAERS Safety Report 9199997 (Version 1)
Quarter: 2013Q1

REPORT INFORMATION
  Report Type: Spontaneous
  Country: US (occurrence: US)
  Receive Date: 20130329
  Receipt Date: 20130329
  Transmission Date: 20140127
  Serious: No
  Sender: FDA-Public Use
  Company Number: US-PFIZER INC-2013099248

PATIENT
  Age: 72 Year
  Sex: Female
  Weight: 102 kg

DRUGS (2)
  1. PREMPRO [Suspect]
     Indication: HOT FLUSH
     Dosage: 0.620 MG, 1X/DAY
     Dates: end: 201212
  2. PAXIL [Suspect]
     Indication: HOT FLUSH
     Dosage: 25 MG, 1X/DAY

REACTIONS (1)
  - Hot flush [Not Recovered/Not Resolved]
